FAERS Safety Report 6248784-4 (Version None)
Quarter: 2009Q2

REPORT INFORMATION
  Report Type: 
  Country: None (occurrence: None)
  Receive Date: 20090624
  Receipt Date: 20090609
  Transmission Date: 20091009
  Serious: Yes (Hospitalization)
  Sender: FDA-Public Use
  Company Number: 8047033

PATIENT
  Age: 33 Year
  Sex: Female
  Weight: 63.1 kg

DRUGS (5)
  1. CDP870 [Suspect]
     Indication: CROHN'S DISEASE
     Dosage: 400 MG SC
     Route: 058
     Dates: start: 20080829
  2. LUNESTA [Concomitant]
  3. LEXAPRO [Concomitant]
  4. DEPO-PROVERA [Concomitant]
  5. PENTASA [Concomitant]

REACTIONS (7)
  - ABDOMINAL PAIN UPPER [None]
  - EFFUSION [None]
  - HYDROPNEUMOTHORAX [None]
  - LOBAR PNEUMONIA [None]
  - OESOPHAGEAL PERFORATION [None]
  - OESOPHAGEAL STENOSIS [None]
  - PYREXIA [None]
